FAERS Safety Report 6476558-8 (Version None)
Quarter: 2009Q4

REPORT INFORMATION
  Report Type: 
  Country: None (occurrence: None)
  Receive Date: 20091207
  Receipt Date: 20091125
  Transmission Date: 20100525
  Serious: Yes (Life-Threatening, Hospitalization)
  Sender: FDA-Public Use
  Company Number: US-KINGPHARMUSA00001-K200801372

PATIENT
  Age: 83 Year
  Sex: Female

DRUGS (11)
  1. ALTACE [Suspect]
     Indication: HYPERTENSION
     Dosage: 5 MG, BID
     Route: 048
     Dates: start: 20070701
  2. BISOPROLOL [Suspect]
     Indication: CORONARY ARTERY DISEASE
     Dosage: 1.25 MG, QD
     Route: 048
     Dates: start: 20050101
  3. ACTRAPID                           /00646001/ [Suspect]
     Indication: TYPE 2 DIABETES MELLITUS
     Dosage: 38-30-30 IU, TID
     Route: 058
     Dates: start: 20070701, end: 20080410
  4. ACTRAPID                           /00646001/ [Suspect]
     Dosage: 38-20-20 IU, TID
     Route: 058
     Dates: start: 20090411
  5. PROTAPHAN                          /00646002/ [Suspect]
     Indication: TYPE 2 DIABETES MELLITUS
     Dosage: 30 IU, QD
     Route: 058
     Dates: start: 20070701, end: 20080410
  6. PROTAPHAN                          /00646002/ [Suspect]
     Dosage: 30 IU, QD
     Route: 058
     Dates: start: 20080411
  7. ALLOPURINOL [Concomitant]
     Indication: HYPERURICAEMIA
     Dosage: 100 MG, UNK
     Route: 048
     Dates: end: 20080410
  8. LACTULOSE [Concomitant]
     Indication: CONSTIPATION
     Dosage: 667 MG, UNK
     Route: 048
     Dates: end: 20080410
  9. FUROSEMIDE [Concomitant]
     Indication: RENAL FAILURE
     Dosage: 80 MG, UNK
     Route: 048
  10. PREGABALIN [Concomitant]
     Dosage: 150 MG, UNK
     Route: 048
  11. XIPAMIDE [Concomitant]
     Indication: CARDIAC FAILURE
     Dosage: 10 MG, UNK
     Route: 048
     Dates: end: 20080410

REACTIONS (8)
  - ASTHENIA [None]
  - DEPRESSED LEVEL OF CONSCIOUSNESS [None]
  - DRUG INTERACTION [None]
  - EYELID FUNCTION DISORDER [None]
  - FATIGUE [None]
  - HYPOGLYCAEMIA [None]
  - MUSCLE TWITCHING [None]
  - SYNCOPE [None]
